FAERS Safety Report 6734141-0 (Version None)
Quarter: 2010Q2

REPORT INFORMATION
  Report Type: 
  Country: None (occurrence: None)
  Receive Date: 20100520
  Receipt Date: 20100419
  Transmission Date: 20101027
  Serious: No
  Sender: FDA-Public Use
  Company Number: US-BAYER-201020464NA

PATIENT
  Age: 31 Year
  Sex: Female

DRUGS (2)
  1. ULTRAVIST 370 [Suspect]
     Indication: COMPUTERISED TOMOGRAM ABDOMEN
     Dosage: TOTAL DAILY DOSE: 100 ML  UNIT DOSE: 100 ML
     Route: 042
     Dates: start: 20100219, end: 20100219
  2. GASTROGRAFIN [Concomitant]
     Dates: start: 20100219, end: 20100219

REACTIONS (2)
  - NASAL CONGESTION [None]
  - SNEEZING [None]
